FAERS Safety Report 16414080 (Version 6)
Quarter: 2019Q3

REPORT INFORMATION
  Report Type: Report from Study
  Country: FR (occurrence: FR)
  Receive Date: 20190611
  Receipt Date: 20190719
  Transmission Date: 20191004
  Serious: Yes (Death, Hospitalization)
  Sender: FDA-Public Use
  Company Number: FR-BAYER-2019-109328

PATIENT
  Age: 72 Year
  Sex: Male
  Weight: 78 kg

DRUGS (11)
  1. TITANOREINE [CHONDRUS CRISPUS EXTRACT;TITANIUM DIOXIDE;ZINC OXIDE] [Concomitant]
     Indication: FUNCTIONAL GASTROINTESTINAL DISORDER
     Dosage: UNK
     Dates: start: 20190521, end: 20190524
  2. REGORAFENIB. [Suspect]
     Active Substance: REGORAFENIB
     Indication: METASTASES TO LIVER
  3. AVELUMAB [Suspect]
     Active Substance: AVELUMAB
     Indication: METASTASES TO LIVER
  4. RAMIPRIL. [Concomitant]
     Active Substance: RAMIPRIL
     Indication: HYPERTENSION
     Dosage: 2.5 MG
     Route: 048
     Dates: start: 20190521
  5. REGORAFENIB. [Suspect]
     Active Substance: REGORAFENIB
     Indication: RECTOSIGMOID CANCER METASTATIC
     Dosage: 160 MG, QD
     Route: 048
     Dates: start: 20190423, end: 20190603
  6. XYLOCAINE [Concomitant]
     Active Substance: LIDOCAINE HYDROCHLORIDE
     Indication: FUNCTIONAL GASTROINTESTINAL DISORDER
     Dosage: UNK
     Dates: start: 20190521, end: 20190524
  7. AVELUMAB [Suspect]
     Active Substance: AVELUMAB
     Indication: RECTOSIGMOID CANCER METASTATIC
     Dosage: 830 MG
     Route: 042
     Dates: start: 20190507, end: 20190521
  8. AVELUMAB [Suspect]
     Active Substance: AVELUMAB
     Indication: METASTASES TO LUNG
  9. TRAMADOL. [Concomitant]
     Active Substance: TRAMADOL
     Indication: PAIN
     Dosage: UNK
     Route: 048
     Dates: start: 20190521
  10. DOLIPRANE [Concomitant]
     Active Substance: ACETAMINOPHEN
     Indication: PAIN
     Dosage: UNK
     Dates: start: 20190521
  11. REGORAFENIB. [Suspect]
     Active Substance: REGORAFENIB
     Indication: METASTASES TO LUNG

REACTIONS (3)
  - Hepatitis [Fatal]
  - Septic shock [Fatal]
  - General physical health deterioration [Not Recovered/Not Resolved]

NARRATIVE: CASE EVENT DATE: 20190530
